FAERS Safety Report 6221594-X (Version None)
Quarter: 2009Q2

REPORT INFORMATION
  Report Type: 
  Country: None (occurrence: None)
  Receive Date: 20090610
  Receipt Date: 20090603
  Transmission Date: 20091009
  Serious: Yes (Death, Hospitalization)
  Sender: FDA-Public Use
  Company Number: US-GILEAD-2009-0022398

PATIENT
  Sex: Female
  Weight: 86.26 kg

DRUGS (15)
  1. LETAIRIS [Suspect]
     Indication: PULMONARY ARTERIAL HYPERTENSION
     Route: 048
     Dates: start: 20090310
  2. REVATIO [Concomitant]
  3. COUMADIN [Concomitant]
  4. FUROSEMIDE [Concomitant]
  5. DILTIAZEM [Concomitant]
  6. COMBIVENT [Concomitant]
  7. ADVAIR HFA [Concomitant]
  8. HUMULIN R [Concomitant]
  9. PREDNISONE [Concomitant]
  10. VALCYTE [Concomitant]
  11. KLOR-CON M10 [Concomitant]
  12. LEVOTHYROXINE [Concomitant]
  13. RENAGEL [Concomitant]
  14. ZINC 220 [Concomitant]
  15. PROTONIX [Concomitant]

REACTIONS (1)
  - DEATH [None]
